FAERS Safety Report 9075153 (Version 1)
Quarter: 2013Q1

REPORT INFORMATION
  Report Type: Report from Study
  Country: AR (occurrence: AR)
  Receive Date: 20130129
  Receipt Date: 20130129
  Transmission Date: 20140127
  Serious: Yes (Death, Hospitalization)
  Sender: FDA-Public Use
  Company Number: AR-SANOFI-AVENTIS-2013SA007039

PATIENT
  Age: 27 Year
  Sex: Female

DRUGS (8)
  1. ISONIAZID [Suspect]
     Indication: PULMONARY TUBERCULOSIS
     Route: 065
  2. ISONIAZID [Suspect]
     Indication: PERITONEAL TUBERCULOSIS
     Route: 065
  3. RIFAMPICIN [Suspect]
     Indication: PULMONARY TUBERCULOSIS
     Route: 065
  4. RIFAMPICIN [Suspect]
     Indication: PERITONEAL TUBERCULOSIS
     Route: 065
  5. PYRAZINAMIDE [Suspect]
     Indication: PERITONEAL TUBERCULOSIS
     Route: 065
  6. PYRAZINAMIDE [Suspect]
     Indication: PULMONARY TUBERCULOSIS
     Route: 065
  7. ETHAMBUTOL [Suspect]
     Indication: PULMONARY TUBERCULOSIS
     Route: 065
  8. ETHAMBUTOL [Suspect]
     Indication: PERITONEAL TUBERCULOSIS
     Route: 065

REACTIONS (9)
  - Rash erythematous [Unknown]
  - Erythema multiforme [Unknown]
  - Multi-organ failure [Fatal]
  - Drug reaction with eosinophilia and systemic symptoms [Unknown]
  - Pyrexia [Unknown]
  - Lymphadenopathy [Unknown]
  - Eosinophilia [Unknown]
  - Hepatitis [Unknown]
  - Face oedema [Unknown]
